FAERS Safety Report 5330572-4 (Version None)
Quarter: 2007Q2

REPORT INFORMATION
  Report Type: 
  Country: None (occurrence: None)
  Receive Date: 20070516
  Receipt Date: 20070503
  Transmission Date: 20071010
  Serious: Yes (Other)
  Sender: FDA-Public Use
  Company Number: B0470286A

PATIENT
  Age: 38 Year
  Sex: Female

DRUGS (2)
  1. PAROXETINE [Suspect]
  2. ALPRAZOLAM [Suspect]

REACTIONS (2)
  - CHOLESTASIS [None]
  - HEPATOCELLULAR DAMAGE [None]
